FAERS Safety Report 25455000 (Version 1)
Quarter: 2025Q2

REPORT INFORMATION
  Report Type: Spontaneous
  Country: FR (occurrence: FR)
  Receive Date: 20250619
  Receipt Date: 20250619
  Transmission Date: 20250716
  Serious: Yes (Death)
  Sender: RANBAXY
  Company Number: FR-AFSSAPS-PP2025000234

PATIENT
  Age: 60 Year
  Sex: Female
  Weight: 57 kg

DRUGS (9)
  1. VALACYCLOVIR [Suspect]
     Active Substance: VALACYCLOVIR HYDROCHLORIDE
     Indication: Product used for unknown indication
     Route: 048
  2. DARZALEX [Suspect]
     Active Substance: DARATUMUMAB
     Indication: Primary amyloidosis
     Route: 040
     Dates: start: 2023, end: 20241205
  3. RAMIPRIL [Suspect]
     Active Substance: RAMIPRIL
     Indication: Product used for unknown indication
     Route: 048
  4. IMMUNOGLOBULIN [Concomitant]
     Indication: Thrombocytopenia
     Route: 040
     Dates: end: 20250107
  5. ROMIPLOSTIM [Concomitant]
     Active Substance: ROMIPLOSTIM
     Indication: Immune thrombocytopenia
     Route: 040
     Dates: end: 20250113
  6. ATOVAQUONE [Concomitant]
     Active Substance: ATOVAQUONE
     Indication: Product used for unknown indication
     Dosage: 750 MILLIGRAM, DAILY, 750 MG/5 ML*2/DAY
     Route: 048
  7. SHINGRIX [Concomitant]
     Active Substance: RECOMBINANT VARICELLA ZOSTER VIRUS (VZV) GLYCOPROTEIN E
     Indication: Product used for unknown indication
     Route: 030
     Dates: start: 20241024, end: 20241024
  8. INFLUVAC [Concomitant]
     Active Substance: INFLUENZA VIRUS VACCINE TRIVALENT TYPE A+B
     Indication: Product used for unknown indication
     Route: 030
     Dates: start: 20241024, end: 20241024
  9. COMIRNATY [Concomitant]
     Indication: Product used for unknown indication
     Route: 030
     Dates: start: 20241118, end: 20241118

REACTIONS (1)
  - Evans syndrome [Fatal]

NARRATIVE: CASE EVENT DATE: 20250102
